FAERS Safety Report 14505429 (Version 2)
Quarter: 2018Q1

REPORT INFORMATION
  Report Type: Spontaneous
  Country: JP (occurrence: JP)
  Receive Date: 20180208
  Receipt Date: 20180305
  Transmission Date: 20180509
  Serious: Yes (Death, Hospitalization, Disabling, Other)
  Sender: FDA-Public Use
  Company Number: JP-009507513-1802JPN000278J

PATIENT
  Age: 8 Decade
  Sex: Female

DRUGS (1)
  1. KEYTRUDA [Suspect]
     Active Substance: PEMBROLIZUMAB
     Indication: TRANSITIONAL CELL CARCINOMA
     Dosage: 200 MG, UNK
     Route: 041
     Dates: start: 20180118

REACTIONS (3)
  - Pleural effusion [Not Recovered/Not Resolved]
  - Death [Fatal]
  - Subileus [Not Recovered/Not Resolved]

NARRATIVE: CASE EVENT DATE: 201802
